FAERS Safety Report 16004060 (Version 5)
Quarter: 2019Q2

REPORT INFORMATION
  Report Type: Spontaneous
  Country: FR (occurrence: FR)
  Receive Date: 20190225
  Receipt Date: 20190403
  Transmission Date: 20190711
  Serious: Yes (Hospitalization)
  Sender: FDA-Public Use
  Company Number: FR-ACCORD-109267

PATIENT
  Age: 77 Year
  Sex: Male
  Weight: 78 kg

DRUGS (4)
  1. HYDROCHLOROTHIAZIDE. [Suspect]
     Active Substance: HYDROCHLOROTHIAZIDE
     Indication: HYPERTENSION
     Route: 048
     Dates: start: 201801, end: 20180104
  2. RAMIPRIL. [Interacting]
     Active Substance: RAMIPRIL
     Indication: HYPERTENSION
     Route: 048
     Dates: start: 201801, end: 20180104
  3. TIORFAN [Interacting]
     Active Substance: RACECADOTRIL
     Indication: DIARRHOEA
     Dosage: 300 MG
     Route: 048
     Dates: start: 20180102, end: 20180104
  4. RACECADOTRIL [Interacting]
     Active Substance: RACECADOTRIL
     Indication: DIARRHOEA
     Dosage: 300 MG, QD
     Dates: start: 20180102, end: 20180104

REACTIONS (3)
  - Angioedema [Recovered/Resolved]
  - Product administration error [Unknown]
  - Drug interaction [Unknown]

NARRATIVE: CASE EVENT DATE: 20180104
